FAERS Safety Report 7224992-0 (Version None)
Quarter: 2011Q1

REPORT INFORMATION
  Report Type: 
  Country: None (occurrence: None)
  Receive Date: 20110107
  Receipt Date: 20110107
  Transmission Date: 20110831
  Serious: Yes (Other)
  Sender: FDA-Public Use
  Company Number: None

PATIENT
  Age: 88 Year
  Sex: Female
  Weight: 55.5 kg

DRUGS (11)
  1. BACTRIM [Concomitant]
  2. PRED FORTE 1% OPTHALMIC SOLUTION [Concomitant]
  3. VANCOMYCIN [Concomitant]
  4. DEXAMETHASONE [Concomitant]
  5. RANIBIZUMAB [Suspect]
     Indication: MACULAR DEGENERATION
     Dosage: 10MG/ML, 0.3ML ONCE MONTHLY INTRAVITREAL 046 OPTHALMIC
     Route: 047
     Dates: start: 20110103
  6. RANIBIZUMAB [Suspect]
     Indication: MACULAR DEGENERATION
     Dosage: 10MG/ML, 0.3ML ONCE MONTHLY INTRAVITREAL 046 OPTHALMIC
     Route: 047
     Dates: start: 20101206
  7. RANIBIZUMAB [Suspect]
     Indication: MACULAR DEGENERATION
     Dosage: 10MG/ML, 0.3ML ONCE MONTHLY INTRAVITREAL 046 OPTHALMIC
     Route: 047
     Dates: start: 20101108
  8. ZYMAR OPTHALMIC SOLUTION [Concomitant]
  9. CYCLOPENTOLATE 05% OPHTHALMIC SOLUTION [Concomitant]
  10. VOLTAREN [Concomitant]
  11. CEFTAZIDIME [Concomitant]

REACTIONS (2)
  - UVEITIS [None]
  - ENDOPHTHALMITIS [None]
